FAERS Safety Report 20128461 (Version 1)
Quarter: 2021Q4

REPORT INFORMATION
  Report Type: Spontaneous
  Country: AU (occurrence: AU)
  Receive Date: 20211130
  Receipt Date: 20211130
  Transmission Date: 20220303
  Serious: Yes (Hospitalization, Other)
  Sender: FDA-Public Use
  Company Number: AU-BAYER-2021A257821

PATIENT

DRUGS (2)
  1. EYLEA [Suspect]
     Active Substance: AFLIBERCEPT
     Indication: Diabetic retinal oedema
     Dosage: UNKNOWN TOTAL NUMBER OF DOSES OF EYLEA
     Route: 031
     Dates: start: 202101
  2. EYLEA [Suspect]
     Active Substance: AFLIBERCEPT
     Dosage: TWO EYLEA INJECTIONS

REACTIONS (2)
  - Chronic kidney disease [Unknown]
  - Injection site pain [Unknown]
